FAERS Safety Report 10214016 (Version 1)
Quarter: 2014Q2

REPORT INFORMATION
  Report Type: Spontaneous
  Country: ES (occurrence: ES)
  Receive Date: 20140603
  Receipt Date: 20140603
  Transmission Date: 20141212
  Serious: Yes (Other)
  Sender: FDA-Public Use
  Company Number: ES-MYLANLABS-2014S1012426

PATIENT
  Age: 63 Year
  Sex: Male

DRUGS (3)
  1. COTRIMOXAZOLE [Suspect]
     Indication: WHIPPLE^S DISEASE
     Dosage: TRIMETHOPRIM/SULFAMETHOXAZOLE 160/800 MG TWICE DAILY
     Route: 048
  2. CEFTRIAXONE [Suspect]
     Indication: WHIPPLE^S DISEASE
     Route: 065
  3. DOXYCYCLINE [Suspect]
     Indication: WHIPPLE^S DISEASE
     Route: 048

REACTIONS (3)
  - Orbital pseudotumour [Recovered/Resolved]
  - Immune reconstitution inflammatory syndrome [Recovered/Resolved]
  - Skin mass [Recovered/Resolved]
